FAERS Safety Report 9098504 (Version 1)
Quarter: 2013Q1

REPORT INFORMATION
  Report Type: Spontaneous
  Country: US (occurrence: US)
  Receive Date: 20130213
  Receipt Date: 20130213
  Transmission Date: 20140127
  Serious: Yes (Other)
  Sender: FDA-Public Use
  Company Number: US-PFIZER INC-2013011110

PATIENT
  Age: 38 Year
  Sex: Male
  Weight: 90.7 kg

DRUGS (5)
  1. VIAGRA [Suspect]
     Indication: ERECTILE DYSFUNCTION
     Dosage: 1 TABLET, AS NEEDED
     Route: 048
     Dates: start: 201203
  2. NITROGLYCERIN [Suspect]
     Indication: ANGINA PECTORIS
     Dosage: UNK, 2X/DAY
     Route: 048
  3. NITROGLYCERIN [Suspect]
     Dosage: UNK, 1X/DAY
     Route: 048
     Dates: start: 2010
  4. GLIPIZIDE [Concomitant]
     Indication: DIABETES MELLITUS
     Dosage: 10 MG, 2X/DAY
     Route: 048
     Dates: start: 201207
  5. METFORMIN [Concomitant]
     Indication: DIABETES MELLITUS
     Dosage: 500 MG, 2X/DAY
     Route: 048
     Dates: start: 201207

REACTIONS (7)
  - Drug administration error [Unknown]
  - Dyspnoea [Unknown]
  - Palpitations [Unknown]
  - Nasal congestion [Unknown]
  - Hyperhidrosis [Unknown]
  - Pallor [Unknown]
  - Dizziness [Unknown]
